FAERS Safety Report 9447251 (Version 2)
Quarter: 2013Q4

REPORT INFORMATION
  Report Type: Spontaneous
  Country: FR (occurrence: FR)
  Receive Date: 20130808
  Receipt Date: 20131122
  Transmission Date: 20140711
  Serious: Yes (Other)
  Sender: FDA-Public Use
  Company Number: FR-ROCHE-1255647

PATIENT
  Age: 35 Year
  Sex: Male

DRUGS (2)
  1. PEG-INTERFERON ALFA 2A [Suspect]
     Indication: HEPATITIS C
     Route: 065
     Dates: start: 20100408
  2. RIBAVIRIN [Suspect]
     Indication: HEPATITIS C
     Dosage: 0.2 MG/KG
     Route: 065
     Dates: start: 20100408

REACTIONS (1)
  - Ophthalmoplegia [Recovered/Resolved]
